FAERS Safety Report 7357376-5 (Version None)
Quarter: 2011Q1

REPORT INFORMATION
  Report Type: 
  Country: None (occurrence: None)
  Receive Date: 20110311
  Receipt Date: 20110311
  Transmission Date: 20110831
  Serious: Yes (Other)
  Sender: FDA-Public Use
  Company Number: None

PATIENT
  Age: 51 Year
  Sex: Male
  Weight: 88.6 kg

DRUGS (2)
  1. PRAZOSIN HCL [Suspect]
     Indication: POST-TRAUMATIC STRESS DISORDER
     Dosage: MG PO
     Route: 048
     Dates: start: 20100924, end: 20110216
  2. TRAZODONE HCL [Suspect]
     Indication: SOMNOLENCE
     Dosage: 200 MG AT BEDTIME PO
     Route: 048
     Dates: start: 20091221, end: 20110216

REACTIONS (6)
  - HEADACHE [None]
  - DRUG DEPENDENCE [None]
  - DIZZINESS [None]
  - FALL [None]
  - MUSCLE SPASMS [None]
  - HEAD INJURY [None]
